FAERS Safety Report 4701592-5 (Version None)
Quarter: 2005Q2

REPORT INFORMATION
  Report Type: 
  Country: None (occurrence: None)
  Receive Date: 20050627
  Receipt Date: 20050610
  Transmission Date: 20051028
  Serious: Yes (Death)
  Sender: FDA-Public Use
  Company Number: CIP04000540

PATIENT

DRUGS (14)
  1. ASACOL [Suspect]
     Dosage: 800-4000 MG DAILY ORAL
     Route: 048
  2. PENTASA                           -SLOW RELEASE (MESALAZINE) [Suspect]
  3. SALOFALK                                (MESALAZINE) [Suspect]
  4. BALSALAZIDE                                     (BALSALAZIDE) [Suspect]
     Dosage: 6750 MG DAILY
  5. OLSALAZINE                                       (OLSALAZINE) [Suspect]
  6. DRUG NOS [Suspect]
  7. AZATHIOPRINE [Concomitant]
  8. PREDSOL RETENTION ENEMA     (PREDNISOLONE SODIUM PHOSPHATE) [Concomitant]
  9. NSAIDS [Concomitant]
  10. DIURETICS [Concomitant]
  11. ANGIOTENSIN II ANTAGONISTS [Concomitant]
  12. PROTON PUMP INHIBITORS [Concomitant]
  13. H2-RECEPTOR ANTAGONISTS [Concomitant]
  14. CITALOPRAM                  (CITALOPRAM) [Concomitant]

REACTIONS (7)
  - DIALYSIS [None]
  - GLOMERULONEPHRITIS FOCAL [None]
  - GLOMERULONEPHRITIS MINIMAL LESION [None]
  - NEPHROPATHY TOXIC [None]
  - RENAL FAILURE CHRONIC [None]
  - RENAL IMPAIRMENT [None]
  - TUBULOINTERSTITIAL NEPHRITIS [None]
